FAERS Safety Report 10169176 (Version 1)
Quarter: 2014Q2

REPORT INFORMATION
  Report Type: Spontaneous
  Country: US (occurrence: US)
  Receive Date: 20140513
  Receipt Date: 20140513
  Transmission Date: 20141212
  Serious: No
  Sender: FDA-Public Use
  Company Number: US-TARO-2014P1003383

PATIENT
  Age: 12 Year
  Sex: Male
  Weight: 34.93 kg

DRUGS (3)
  1. CETIRIZINE HCL CHILDREN ORAL SOLUTION ALLERGY 1MG/ML (SUGARFREE GRAPE) [Suspect]
     Indication: RASH
     Route: 048
     Dates: start: 20140415, end: 20140415
  2. TRIAMCINOLONE ACETONIDE CREAM USP 0.1% [Suspect]
     Indication: HYPERSENSITIVITY
     Route: 061
     Dates: start: 20140415, end: 20140416
  3. FLUTICASONE PROPIONATE [Suspect]
     Indication: HYPERSENSITIVITY
     Route: 061
     Dates: start: 20140415, end: 20140416

REACTIONS (1)
  - Headache [Recovered/Resolved]
